FAERS Safety Report 13007388 (Version 1)
Quarter: 2016Q4

REPORT INFORMATION
  Report Type: Spontaneous
  Country: US (occurrence: US)
  Receive Date: 20161207
  Receipt Date: 20161207
  Transmission Date: 20170207
  Serious: Yes (Other)
  Sender: FDA-Public Use
  Company Number: US-CELGENEUS-USA-2015116133

PATIENT

DRUGS (3)
  1. PEMBROLIZUMAB. [Suspect]
     Active Substance: PEMBROLIZUMAB
     Indication: PLASMA CELL MYELOMA
     Dosage: 200MG
     Route: 041
  2. DEXAMETHASONE. [Suspect]
     Active Substance: DEXAMETHASONE
     Indication: PLASMA CELL MYELOMA
     Dosage: 40 MG
     Route: 065
  3. POMALYST [Suspect]
     Active Substance: POMALIDOMIDE
     Indication: PLASMA CELL MYELOMA
     Dosage: 4MG
     Route: 048

REACTIONS (31)
  - Infection [Unknown]
  - Hyperthyroidism [Unknown]
  - Oedema [Unknown]
  - Adrenal insufficiency [Unknown]
  - Pyrexia [Unknown]
  - Vitiligo [Unknown]
  - Hypothyroidism [Unknown]
  - Rash [Unknown]
  - Upper respiratory tract infection [Unknown]
  - Hyperglycaemia [Unknown]
  - Constipation [Unknown]
  - Anaemia [Unknown]
  - Dizziness [Unknown]
  - Autoimmune hepatitis [Unknown]
  - Pneumonitis [Unknown]
  - Neutropenia [Unknown]
  - Blood creatinine increased [Unknown]
  - Transaminases increased [Unknown]
  - Hypotension [Unknown]
  - Fatigue [Unknown]
  - Interstitial lung disease [Unknown]
  - Pruritus [Unknown]
  - Lymphopenia [Unknown]
  - Plasma cell myeloma [Unknown]
  - Palpitations [Unknown]
  - Dyspnoea [Unknown]
  - Muscle spasms [Unknown]
  - Thrombocytopenia [Unknown]
  - Pneumonia [Unknown]
  - Hypoglycaemia [Unknown]
  - Arrhythmia [Unknown]
